FAERS Safety Report 5347376-9 (Version None)
Quarter: 2007Q2

REPORT INFORMATION
  Report Type: 
  Country: None (occurrence: None)
  Receive Date: 20070507
  Receipt Date: 20070103
  Transmission Date: 20071010
  Serious: Yes (Hospitalization, Other)
  Sender: FDA-Public Use
  Company Number: 33470

PATIENT
  Age: 67 Year
  Sex: Female

DRUGS (4)
  1. ADRIAMYCIN PFS [Suspect]
     Indication: BREAST CANCER
     Dosage: 107MG
     Dates: start: 20061108, end: 20061122
  2. OXYCODONE HCL [Concomitant]
  3. BICARBONATE RINSES [Concomitant]
  4. NEXIUM [Concomitant]

REACTIONS (2)
  - NEUTROPENIA [None]
  - PYREXIA [None]
